FAERS Safety Report 6403620-8 (Version None)
Quarter: 2009Q4

REPORT INFORMATION
  Report Type: 
  Country: None (occurrence: None)
  Receive Date: 20091013
  Receipt Date: 20090930
  Transmission Date: 20100525
  Serious: No
  Sender: FDA-Public Use
  Company Number: 007447

PATIENT
  Age: 95 Year
  Sex: Male

DRUGS (2)
  1. PLETAL [Suspect]
     Indication: ARTERIOSCLEROSIS OBLITERANS
     Dosage: 100 MG, BID ORAL
     Route: 048
     Dates: start: 20090430, end: 20090529
  2. BLOPRESS (CANDESARTAN CILEXETIL) TABLET [Concomitant]

REACTIONS (2)
  - OEDEMA [None]
  - RENAL IMPAIRMENT [None]
